FAERS Safety Report 19282428 (Version 1)
Quarter: 2021Q2

REPORT INFORMATION
  Report Type: Spontaneous
  Country: CZ (occurrence: CZ)
  Receive Date: 20210520
  Receipt Date: 20210520
  Transmission Date: 20210717
  Serious: Yes (Hospitalization, Other)
  Sender: FDA-Public Use
  Company Number: CZ-SA-2021SA159153

PATIENT
  Age: 40 Year
  Sex: Male

DRUGS (9)
  1. LANTUS [Suspect]
     Active Substance: INSULIN GLARGINE
     Dosage: 35 UG, IN THE EVENING
     Dates: start: 200903
  2. SIOFOR [Suspect]
     Active Substance: METFORMIN HYDROCHLORIDE
     Indication: TYPE 2 DIABETES MELLITUS
     Dosage: 1000 MG, TID
     Dates: start: 20100104
  3. APIDRA [Suspect]
     Active Substance: INSULIN GLULISINE
     Dosage: UNK
     Dates: start: 200712
  4. SIOFOR [Suspect]
     Active Substance: METFORMIN HYDROCHLORIDE
     Dosage: 500 UNK
     Dates: start: 200502
  5. LANTUS [Suspect]
     Active Substance: INSULIN GLARGINE
     Indication: TYPE 2 DIABETES MELLITUS
     Dosage: IN THE EVENING
     Dates: start: 20070911
  6. LANTUS [Suspect]
     Active Substance: INSULIN GLARGINE
     Dosage: 8 U, HS
     Dates: start: 20100104
  7. APIDRA [Suspect]
     Active Substance: INSULIN GLULISINE
     Indication: TYPE 2 DIABETES MELLITUS
     Dosage: 14?10?14?10?14 UNITS
     Dates: start: 20100104
  8. APIDRA [Suspect]
     Active Substance: INSULIN GLULISINE
     Dosage: 10?10?10 UNITSUNK
     Dates: start: 200712
  9. APIDRA [Suspect]
     Active Substance: INSULIN GLULISINE
     Dosage: 8?10?8 UNITS
     Dates: start: 200903

REACTIONS (2)
  - Depressed level of consciousness [Recovered/Resolved]
  - Hyperosmolar state [Recovered/Resolved]

NARRATIVE: CASE EVENT DATE: 20100104
